FAERS Safety Report 8758512 (Version 4)
Quarter: 2013Q1

REPORT INFORMATION
  Report Type: Spontaneous
  Country: US (occurrence: US)
  Receive Date: 20120829
  Receipt Date: 20130311
  Transmission Date: 20140127
  Serious: Yes (Hospitalization, Other)
  Sender: FDA-Public Use
  Company Number: US-009507513-1205USA04335

PATIENT
  Sex: Female
  Weight: 76.42 kg

DRUGS (5)
  1. FOSAMAX [Suspect]
     Indication: OSTEOPOROSIS
     Dosage: 10 MG, UNK
     Route: 048
     Dates: start: 20021014, end: 20061102
  2. FOSAMAX PLUS D [Suspect]
     Indication: OSTEOPOROSIS
     Dosage: 70 MG, UNK
     Route: 048
     Dates: start: 20070307, end: 20081119
  3. FOSAMAX [Suspect]
     Indication: OSTEOPOROSIS
     Dosage: 70 MG, UNK
     Route: 048
     Dates: start: 20090212, end: 20090731
  4. ALENDRONATE SODIUM [Suspect]
     Indication: OSTEOPOROSIS
     Dosage: 70 MG, UNK
     Dates: start: 20091019, end: 201005
  5. ALENDRONATE SODIUM [Suspect]
     Route: 048
     Dates: start: 201001, end: 201005

REACTIONS (11)
  - Open reduction of fracture [Unknown]
  - Femur fracture [Unknown]
  - Femur fracture [Unknown]
  - Tooth extraction [Unknown]
  - Urinary tract infection [Unknown]
  - Toe operation [Unknown]
  - Chronic sinusitis [Unknown]
  - Hypercholesterolaemia [Unknown]
  - Varicella [Unknown]
  - Osteoarthritis [Unknown]
  - Drug ineffective [Unknown]
